FAERS Safety Report 15553790 (Version 1)
Quarter: 2018Q4

REPORT INFORMATION
  Report Type: Spontaneous
  Country: US (occurrence: US)
  Receive Date: 20181022
  Receipt Date: 20181022
  Transmission Date: 20190205
  Serious: Yes (Other)
  Sender: FDA-Public Use
  Company Number: None

PATIENT
  Age: 70 Year
  Sex: Female
  Weight: 117.93 kg

DRUGS (8)
  1. SPIRONOLACTONE. [Concomitant]
     Active Substance: SPIRONOLACTONE
  2. CIPROFLOXACIN. [Suspect]
     Active Substance: CIPROFLOXACIN
     Indication: SINUSITIS
     Dosage: ?          QUANTITY:4 DF DOSAGE FORM;?
     Route: 048
     Dates: start: 201809, end: 201809
  3. DULCOLAX NOS [Concomitant]
     Active Substance: BISACODYL OR DOCUSATE SODIUM
  4. MULTIVITAMINS [Concomitant]
     Active Substance: VITAMINS
  5. ASPIRIN. [Concomitant]
     Active Substance: ASPIRIN
  6. ABILIFY [Concomitant]
     Active Substance: ARIPIPRAZOLE
  7. TUMS [Concomitant]
     Active Substance: CALCIUM CARBONATE
  8. NITROGLYCERINE [Concomitant]
     Active Substance: NITROGLYCERIN

REACTIONS (2)
  - Cardiac disorder [None]
  - Peripheral swelling [None]

NARRATIVE: CASE EVENT DATE: 201809
